FAERS Safety Report 16910602 (Version 1)
Quarter: 2019Q4

REPORT INFORMATION
  Report Type: Report from Study
  Country: US (occurrence: US)
  Receive Date: 20191011
  Receipt Date: 20191011
  Transmission Date: 20200122
  Serious: Yes (Other)
  Sender: FDA-Public Use
  Company Number: US-AMGEN INC.-USASL2019167510

PATIENT
  Age: 51 Year
  Sex: Female

DRUGS (1)
  1. AIMOVIG [Suspect]
     Active Substance: ERENUMAB-AOOE
     Indication: PRODUCT USED FOR UNKNOWN INDICATION
     Dosage: 70 MILLIGRAM, QMO
     Route: 065

REACTIONS (5)
  - Brain injury [Recovering/Resolving]
  - Hypertension [Unknown]
  - Herpes zoster [Unknown]
  - Seizure [Recovering/Resolving]
  - Stress [Unknown]

NARRATIVE: CASE EVENT DATE: 2019
